FAERS Safety Report 9298836 (Version 1)
Quarter: 2013Q2

REPORT INFORMATION
  Report Type: Spontaneous
  Country: GB (occurrence: None)
  Receive Date: 20130515
  Receipt Date: 20130515
  Transmission Date: 20140414
  Serious: Yes (Other)
  Sender: FDA-Public Use
  Company Number: GER/UKI/13/0029534

PATIENT
  Sex: Male

DRUGS (2)
  1. FLUOXETINE (FLUOXETINE HYDROCHLORIDE) [Suspect]
     Indication: DEPRESSION
     Dates: start: 2006
  2. FLUOXETINE (FLUOXETINE HYDROCHLORIDE) [Suspect]
     Indication: OBSESSIVE-COMPULSIVE DISORDER
     Dates: start: 2006

REACTIONS (5)
  - Cognitive disorder [None]
  - Fatigue [None]
  - Lethargy [None]
  - Loss of libido [None]
  - Quality of life decreased [None]
